FAERS Safety Report 5978398-2 (Version None)
Quarter: 2008Q4

REPORT INFORMATION
  Report Type: 
  Country: None (occurrence: None)
  Receive Date: 20081204
  Receipt Date: 20081125
  Transmission Date: 20090506
  Serious: Yes (Other)
  Sender: FDA-Public Use
  Company Number: JP-JNJFOC-20081100833

PATIENT
  Sex: Female
  Weight: 37 kg

DRUGS (9)
  1. REMICADE [Suspect]
     Indication: CROHN'S DISEASE
     Route: 042
  2. PENTASA [Concomitant]
     Indication: CROHN'S DISEASE
     Route: 048
  3. RACOL [Concomitant]
     Route: 048
  4. ISCOTIN [Concomitant]
     Indication: ANTIBIOTIC PROPHYLAXIS
     Route: 048
  5. MARZULENE ES [Concomitant]
     Dosage: DOSE: 1 TABLET
     Route: 048
  6. BIOFERMIN [Concomitant]
     Indication: CROHN'S DISEASE
     Route: 048
  7. FERRUM [Concomitant]
     Indication: IRON DEFICIENCY ANAEMIA
     Route: 048
  8. TERRA-CORTRIL [Concomitant]
     Route: 048
  9. DALACIN T [Concomitant]
     Indication: DERMATITIS ACNEIFORM

REACTIONS (2)
  - DERMATITIS ACNEIFORM [None]
  - PYODERMA GANGRENOSUM [None]
